FAERS Safety Report 9263085 (Version 1)
Quarter: 2013Q2

REPORT INFORMATION
  Report Type: Spontaneous
  Country: US (occurrence: None)
  Receive Date: 20130426
  Receipt Date: 20130426
  Transmission Date: 20140414
  Serious: Yes (Life-Threatening)
  Sender: FDA-Public Use
  Company Number: None

PATIENT
  Sex: Female
  Weight: 54.43 kg

DRUGS (1)
  1. CLINDAMYCIN [Suspect]
     Indication: POSTOPERATIVE WOUND INFECTION
     Dosage: 300MG/3XDAY/10DAY
     Route: 048
     Dates: start: 20130306, end: 20130308

REACTIONS (1)
  - Drug hypersensitivity [None]
